FAERS Safety Report 17215885 (Version 1)
Quarter: 2019Q4

REPORT INFORMATION
  Report Type: Report from Study
  Country: US (occurrence: US)
  Receive Date: 20191230
  Receipt Date: 20191230
  Transmission Date: 20200122
  Serious: Yes (Hospitalization)
  Sender: FDA-Public Use
  Company Number: US-KARYOPHARM-2019KPT001013

PATIENT
  Sex: Female

DRUGS (2)
  1. PACLITAXEL. [Suspect]
     Active Substance: PACLITAXEL
     Indication: OVARIAN CANCER
     Dosage: 80 MG/M2, WEEKLY FOR 2 WEEKS FOLLOWED BY 1 WEEK OFF
     Route: 042
  2. SELINEXOR [Suspect]
     Active Substance: SELINEXOR
     Indication: OVARIAN CANCER
     Dosage: 60 MG, 2X/WEEK
     Route: 048

REACTIONS (1)
  - Pelvic pain [Recovered/Resolved]

NARRATIVE: CASE EVENT DATE: 20191206
